FAERS Safety Report 5425219-2 (Version None)
Quarter: 2007Q3

REPORT INFORMATION
  Report Type: 
  Country: None (occurrence: None)
  Receive Date: 20070824
  Receipt Date: 20070814
  Transmission Date: 20080115
  Serious: Yes (Hospitalization, Disabling)
  Sender: FDA-Public Use
  Company Number: AU-SANOFI-SYNTHELABO-A01200709038

PATIENT
  Age: 56 Year
  Sex: Female

DRUGS (2)
  1. STILNOX [Suspect]
     Indication: INSOMNIA
     Dosage: UNK
     Route: 065
     Dates: start: 20020101, end: 20050101
  2. STILNOX [Suspect]
     Dosage: UNK
     Route: 065
     Dates: start: 20050101, end: 20070501

REACTIONS (10)
  - ANAPHYLACTIC REACTION [None]
  - CONTUSION [None]
  - DEPRESSION [None]
  - DRUG WITHDRAWAL SYNDROME [None]
  - EATING DISORDER [None]
  - SLEEP TALKING [None]
  - SOMNAMBULISM [None]
  - SUICIDE ATTEMPT [None]
  - UPPER LIMB FRACTURE [None]
  - WEIGHT INCREASED [None]
